FAERS Safety Report 10818750 (Version 4)
Quarter: 2015Q4

REPORT INFORMATION
  Report Type: Spontaneous
  Country: US (occurrence: US)
  Receive Date: 20150218
  Receipt Date: 20151103
  Transmission Date: 20160304
  Serious: Yes (Hospitalization)
  Sender: FDA-Public Use
  Company Number: US-PFIZER INC-2015058718

PATIENT
  Age: 66 Year
  Sex: Female
  Weight: 99 kg

DRUGS (39)
  1. ALLOPURINOL. [Concomitant]
     Active Substance: ALLOPURINOL
     Dosage: (2X200MG) 400 MG, 1X/DAY
     Route: 048
  2. VITAMIN D [Concomitant]
     Active Substance: CHOLECALCIFEROL
     Indication: VITAMIN SUPPLEMENTATION
     Dosage: 1000 IU, DAILY
     Route: 048
     Dates: start: 2014
  3. POTASSIUM BICARBONATE. [Concomitant]
     Active Substance: POTASSIUM BICARBONATE
     Indication: BLOOD POTASSIUM ABNORMAL
     Dosage: 75 MG, DAILY
     Route: 048
  4. EMU OIL [Concomitant]
     Active Substance: EMU OIL
     Indication: PAIN
     Dosage: UNK UNK, AS NEEDED (APPLY TO AFFECTED AREA DAILY AS NEEDED)
  5. MELATONIN [Concomitant]
     Active Substance: MELATONIN
     Indication: SLEEP DISORDER
     Dosage: 3 MG, AS NEEDED (1 TAB BY MOUTH AT BEDTIME)
     Route: 048
  6. ZOFRAN [Concomitant]
     Active Substance: ONDANSETRON HYDROCHLORIDE
     Indication: NAUSEA
     Dosage: 4 MG, 4X/DAY
     Route: 048
  7. AMITRIPTYLINE [Concomitant]
     Active Substance: AMITRIPTYLINE
     Indication: PERIPHERAL SWELLING
  8. SENOKOT-S [Concomitant]
     Active Substance: DOCUSATE SODIUM\SENNOSIDES
     Dosage: 2 DF, 2X/DAY
     Route: 048
  9. SODIUM CHLORIDE. [Concomitant]
     Active Substance: SODIUM CHLORIDE
     Dosage: UNK  (3-5 ML THROUGH VEIN FLUSH TID./ PF 0.9% FLUSH 3-5 ML)
     Route: 042
  10. FUROSEMIDE. [Concomitant]
     Active Substance: FUROSEMIDE
     Indication: FLUID RETENTION
     Dosage: 80 MG 1/2 TABLET, DAILY
     Route: 048
     Dates: start: 2013
  11. PRAVACHOL [Concomitant]
     Active Substance: PRAVASTATIN SODIUM
     Indication: PROPHYLAXIS
     Dosage: 20 MG, DAILY (40 MG 1/2 TABLET, DAILY)
     Route: 048
  12. SPIROLACTONE [Concomitant]
     Active Substance: SPIRONOLACTONE
     Indication: FLUID RETENTION
     Dosage: 25 MG, DAILY
     Route: 048
  13. ANASPAZ [Concomitant]
     Active Substance: HYOSCYAMINE SULFATE
     Indication: BLADDER DISCOMFORT
  14. REVATIO [Suspect]
     Active Substance: SILDENAFIL CITRATE
     Dosage: 20 MG, 3X/DAY
     Route: 048
     Dates: start: 2014
  15. VITAMIN B12 [Concomitant]
     Active Substance: CYANOCOBALAMIN
     Indication: VITAMIN SUPPLEMENTATION
     Dosage: 500 MG, 1X/DAY
     Route: 048
     Dates: start: 2014
  16. REVATIO [Suspect]
     Active Substance: SILDENAFIL CITRATE
     Indication: DYSPNOEA
     Dosage: 20 MG, 1X/DAY
  17. AMITRIPTYLINE [Concomitant]
     Active Substance: AMITRIPTYLINE
     Indication: PAIN IN EXTREMITY
     Dosage: UNK
     Route: 061
     Dates: start: 2014
  18. GABAPENTIN. [Concomitant]
     Active Substance: GABAPENTIN
     Indication: PULMONARY HYPERTENSION
     Dosage: 100 MG, 2X/DAY
     Route: 048
     Dates: start: 2014
  19. OMEPRAZOLE. [Concomitant]
     Active Substance: OMEPRAZOLE
     Indication: GASTROOESOPHAGEAL REFLUX DISEASE
     Dosage: 20 MG, DAILY
     Route: 048
  20. MIRAPEX [Concomitant]
     Active Substance: PRAMIPEXOLE DIHYDROCHLORIDE
     Dosage: 0.5 MG, DAILY (1 TAB MY MOUTH AT BEDTIME DAILY)
     Route: 048
  21. ALLOPURINOL. [Concomitant]
     Active Substance: ALLOPURINOL
     Dosage: 0.5 DF, 1X/DAY
     Route: 048
  22. PLAVIX [Concomitant]
     Active Substance: CLOPIDOGREL BISULFATE
     Indication: BLOOD PRESSURE MEASUREMENT
     Dosage: 75 MG, 1X/DAY (75 MG BY MOUTH DAILY)
     Route: 048
     Dates: start: 2014
  23. NORCO [Concomitant]
     Active Substance: ACETAMINOPHEN\HYDROCODONE BITARTRATE
     Indication: PAIN
     Dosage: 5/325 MG, 1-2 TABLETS EVERY 4 HOURS AS NEEDED
     Dates: start: 2014
  24. PEPCID [Concomitant]
     Active Substance: FAMOTIDINE
     Dosage: 20 MG, DAILY
     Route: 048
  25. K-DUR [Concomitant]
     Active Substance: POTASSIUM CHLORIDE
     Dosage: 1 DF, DAILY (10 MEQ TABLET)
  26. PROCAINE [Concomitant]
     Active Substance: PROCAINE
     Dosage: 3X/DAY (0.5 ML/PF SYRINGE 5,000 UNITS; INJECT/ EVERY 8 HOURS)
  27. HEPARIN [Concomitant]
     Active Substance: HEPARIN SODIUM
     Dosage: 3X/DAY (0.5 ML/PF SYRINGE 5,000 UNITS/INJECT: EVERY 8 HOURS)
  28. CEPASTAT [Concomitant]
     Active Substance: PHENOL
     Indication: OROPHARYNGEAL PAIN
     Dosage: 1 DF, AS NEEDED
  29. METAMUCIL [Concomitant]
     Active Substance: PLANTAGO SEED
     Dosage: 1 DF, 2X/DAY
  30. ALLOPURINOL. [Concomitant]
     Active Substance: ALLOPURINOL
     Indication: GOUT
     Dosage: 100 MG, DAILY
     Route: 048
     Dates: start: 2014
  31. VITAMIN B12 [Concomitant]
     Active Substance: CYANOCOBALAMIN
     Dosage: 500 ?G, DAILY
     Route: 048
  32. PREDNISONE. [Concomitant]
     Active Substance: PREDNISONE
     Indication: GOUT
     Dosage: 5 MG, DAILY
     Route: 048
     Dates: start: 2014
  33. MIRAPEX [Concomitant]
     Active Substance: PRAMIPEXOLE DIHYDROCHLORIDE
     Dosage: 1 MG, DAILY (TABLET 0.5 MG: TAKE 2 TABAT BED  TIME)
     Route: 048
  34. ANASPAZ [Concomitant]
     Active Substance: HYOSCYAMINE SULFATE
     Indication: MUSCLE SPASMS
     Dosage: 0.125 MG, AS NEEDED (1 TAB UNDER TONGUE TWICE DAILY AS NEEDED)
     Route: 060
  35. PERCOCET [Concomitant]
     Active Substance: ACETAMINOPHEN\OXYCODONE HYDROCHLORIDE
     Indication: PAIN
     Dosage: UNK UNK, AS NEEDED (OXYCODNE 5/ ACETAMINOPHEN 325 MG)
     Route: 048
  36. PROTONIX [Concomitant]
     Active Substance: PANTOPRAZOLE SODIUM
     Dosage: 40 MG, DAILY
     Route: 048
  37. OPSUMIT [Concomitant]
     Active Substance: MACITENTAN
     Indication: DYSPNOEA
     Dosage: 1 DF, DAILY
     Route: 048
  38. AQUAPHOR [Concomitant]
     Active Substance: PETROLATUM
     Indication: DRY SKIN
     Dosage: UNK UNK, AS NEEDED (APPLY TO AFFECTED AREA DAILY)
     Route: 061
  39. GLYCOLAX [Concomitant]
     Active Substance: POLYETHYLENE GLYCOL 3350
     Dosage: 17 G, DAILY

REACTIONS (5)
  - Gait disturbance [Not Recovered/Not Resolved]
  - Drug dispensing error [Unknown]
  - Oedema peripheral [Not Recovered/Not Resolved]
  - Dyspnoea [Not Recovered/Not Resolved]
  - Intentional product use issue [Unknown]
